FAERS Safety Report 10061413 (Version 2)
Quarter: 2014Q2

REPORT INFORMATION
  Report Type: Spontaneous
  Country: US (occurrence: US)
  Receive Date: 20140407
  Receipt Date: 20140423
  Transmission Date: 20141212
  Serious: Yes (Hospitalization)
  Sender: FDA-Public Use
  Company Number: US-BAYER-2014-048113

PATIENT
  Age: 29 Year
  Sex: Female

DRUGS (10)
  1. OCELLA [Suspect]
  2. YASMIN [Suspect]
  3. ACYCLOVIR ALPHARMA [ACICLOVIR SODIUM] [Concomitant]
     Dosage: 400 MG, UNK
  4. NASONEX [Concomitant]
     Dosage: 50MCG
  5. ZOFRAN [Concomitant]
     Dosage: THREE TIMES DAILY
     Route: 048
  6. TORADOL [Concomitant]
  7. HYDROCODONE W/APAP [Concomitant]
     Dosage: 5 MG / 500 MG EVERY 4 TO 6
  8. MOTRIN [Concomitant]
  9. PREMARIN [Concomitant]
  10. VICODIN [Concomitant]

REACTIONS (1)
  - Deep vein thrombosis [None]
